FAERS Safety Report 5957256-3 (Version None)
Quarter: 2008Q4

REPORT INFORMATION
  Report Type: 
  Country: None (occurrence: None)
  Receive Date: 20081118
  Receipt Date: 20081104
  Transmission Date: 20090506
  Serious: Yes (Hospitalization)
  Sender: FDA-Public Use
  Company Number: US-AMGEN-US310244

PATIENT
  Sex: Female

DRUGS (8)
  1. PANITUMUMAB [Suspect]
     Indication: COLORECTAL CANCER
     Route: 042
     Dates: start: 20080819, end: 20080916
  2. IRINOTECAN HYDROCHLORIDE [Concomitant]
  3. FLUOROURACIL [Concomitant]
  4. LEUCOVORIN CALCIUM [Concomitant]
  5. REGLAN [Concomitant]
     Route: 065
     Dates: start: 20080812
  6. FLOVENT [Concomitant]
     Route: 065
     Dates: start: 19860101
  7. COMBIVENT [Concomitant]
     Route: 055
     Dates: start: 19860101
  8. DIOVAN HCT [Concomitant]
     Route: 065
     Dates: start: 19980101

REACTIONS (1)
  - CHRONIC OBSTRUCTIVE PULMONARY DISEASE [None]
